FAERS Safety Report 4767650-4 (Version None)
Quarter: 2005Q3

REPORT INFORMATION
  Report Type: 
  Country: None (occurrence: None)
  Receive Date: 20050912
  Receipt Date: 20050831
  Transmission Date: 20060218
  Serious: Yes (Hospitalization)
  Sender: FDA-Public Use
  Company Number: 2005059574

PATIENT
  Age: 61 Year
  Sex: Female
  Weight: 58 kg

DRUGS (2)
  1. NEURONTIN [Suspect]
     Indication: NEURALGIA
     Dosage: 2400 MG (800 MG, 3 IN 1 D),
     Dates: start: 20041201, end: 20050310
  2. ALFUZOSIN HYDROCHLORIDE (ALFUZOSIN HYDROCHLORIDE) [Concomitant]

REACTIONS (7)
  - BALANCE DISORDER [None]
  - DRUG EFFECT DECREASED [None]
  - FALL [None]
  - MALAISE [None]
  - SYNCOPE [None]
  - SYNCOPE VASOVAGAL [None]
  - VERTIGO [None]
